FAERS Safety Report 5914938-7 (Version None)
Quarter: 2008Q4

REPORT INFORMATION
  Report Type: 
  Country: None (occurrence: None)
  Receive Date: 20081010
  Receipt Date: 20081001
  Transmission Date: 20090506
  Serious: Yes (Other)
  Sender: FDA-Public Use
  Company Number: CA-JNJFOC-20080606823

PATIENT
  Sex: Male
  Weight: 73 kg

DRUGS (6)
  1. REMICADE [Suspect]
     Indication: COLITIS ULCERATIVE
     Route: 042
  2. PENTASA [Concomitant]
  3. CALCIUM + VITAMIN D [Concomitant]
     Dosage: DOSE: 2 TABLETS DAILY
  4. FERROUS SULFATE [Concomitant]
  5. ACTONEL [Concomitant]
  6. OXAZEPAM [Concomitant]

REACTIONS (2)
  - PETECHIAE [None]
  - TEETH BRITTLE [None]
